FAERS Safety Report 7567914-5 (Version None)
Quarter: 2011Q2

REPORT INFORMATION
  Report Type: 
  Country: None (occurrence: None)
  Receive Date: 20110616
  Receipt Date: 20110608
  Transmission Date: 20111010
  Serious: Yes (Hospitalization)
  Sender: FDA-Public Use
  Company Number: ALP-11-03

PATIENT
  Sex: Female

DRUGS (2)
  1. ALPRAZOLAM [Suspect]
     Indication: PANIC ATTACK
     Dosage: 0.25MG/3XS DAY
  2. FLUOXETINE [Concomitant]

REACTIONS (2)
  - SUICIDAL IDEATION [None]
  - SOMNOLENCE [None]
